FAERS Safety Report 18745753 (Version 2)
Quarter: 2021Q1

REPORT INFORMATION
  Report Type: Spontaneous
  Country: DE (occurrence: DE)
  Receive Date: 20210115
  Receipt Date: 20210203
  Transmission Date: 20210419
  Serious: Yes (Other)
  Sender: FDA-Public Use
  Company Number: DE-BAYER-2021-013166

PATIENT
  Age: 71 Year
  Sex: Female
  Weight: 75 kg

DRUGS (2)
  1. STATIN [NYSTATIN] [Concomitant]
     Active Substance: NYSTATIN
  2. GADOVIST [Suspect]
     Active Substance: GADOBUTROL
     Indication: MAGNETIC RESONANCE IMAGING NECK
     Dosage: 7.5 ML, ONCE
     Dates: start: 20201217, end: 20201217

REACTIONS (11)
  - Pruritus [Not Recovered/Not Resolved]
  - Disturbance in attention [Not Recovered/Not Resolved]
  - Vertigo [None]
  - Cardiovascular disorder [Not Recovered/Not Resolved]
  - Urticaria [Not Recovered/Not Resolved]
  - Contrast media toxicity [None]
  - Fatigue [Not Recovered/Not Resolved]
  - Pollakiuria [Not Recovered/Not Resolved]
  - Rash [Not Recovered/Not Resolved]
  - Drug interaction [None]
  - Skin induration [Not Recovered/Not Resolved]

NARRATIVE: CASE EVENT DATE: 20201218
